FAERS Safety Report 8478773 (Version 3)
Quarter: 2013Q2

REPORT INFORMATION
  Report Type: Spontaneous
  Country: US (occurrence: GB)
  Receive Date: 20120319
  Receipt Date: 20130510
  Transmission Date: 20140414
  Serious: Yes (Death)
  Sender: FDA-Public Use
  Company Number: US-ALEXION-A201200454

PATIENT
  Age: 55 Year
  Sex: Male

DRUGS (4)
  1. SOLIRIS 300MG [Suspect]
     Indication: PAROXYSMAL NOCTURNAL HAEMOGLOBINURIA
     Dosage: 600 MG, QW X 4
     Route: 042
  2. SOLIRIS 300MG [Suspect]
     Dosage: 900 MG, SINGLE
     Route: 042
  3. SOLIRIS 300MG [Suspect]
     Dosage: 900 MG, Q2W
     Route: 042
  4. ANTIBIOTICS [Concomitant]
     Indication: ANTIBIOTIC PROPHYLAXIS
     Dosage: UNK
     Dates: start: 201001

REACTIONS (1)
  - Colon cancer metastatic [Fatal]
